FAERS Safety Report 5806399-3 (Version None)
Quarter: 2008Q3

REPORT INFORMATION
  Report Type: 
  Country: None (occurrence: None)
  Receive Date: 20080710
  Receipt Date: 20080627
  Transmission Date: 20090109
  Serious: Yes (Hospitalization)
  Sender: FDA-Public Use
  Company Number: US-SANOFI-SYNTHELABO-A03200802571

PATIENT
  Sex: Female
  Weight: 81.6 kg

DRUGS (2)
  1. AMBIEN [Suspect]
     Indication: INSOMNIA
     Dosage: UNK
     Route: 048
     Dates: start: 20080301, end: 20080601
  2. AMBIEN [Suspect]
     Dosage: UNK
     Route: 048
     Dates: start: 20080620, end: 20080626

REACTIONS (6)
  - AKINAESTHESIA [None]
  - DEPRESSION [None]
  - DISEASE RECURRENCE [None]
  - DRUG INEFFECTIVE [None]
  - HALLUCINATION [None]
  - SUICIDAL IDEATION [None]
